FAERS Safety Report 4510462-7 (Version None)
Quarter: 2004Q4

REPORT INFORMATION
  Report Type: 
  Country: None (occurrence: None)
  Receive Date: 20041124
  Receipt Date: 20041104
  Transmission Date: 20050328
  Serious: Yes (Other)
  Sender: FDA-Public Use
  Company Number: NL-GLAXOSMITHKLINE-B0351173A

PATIENT
  Age: 55 Year
  Sex: Female
  Weight: 45 kg

DRUGS (1)
  1. BUPROPION HYDROCHLORIDE [Suspect]
     Dosage: 150MG SEE DOSAGE TEXT
     Route: 065
     Dates: start: 20040523, end: 20040630

REACTIONS (3)
  - HYPERTHYROIDISM [None]
  - INSOMNIA [None]
  - PALPITATIONS [None]
